FAERS Safety Report 4489625-5 (Version None)
Quarter: 2004Q4

REPORT INFORMATION
  Report Type: 
  Country: None (occurrence: None)
  Receive Date: 20041028
  Receipt Date: 20041020
  Transmission Date: 20050328
  Serious: Yes (Other)
  Sender: FDA-Public Use
  Company Number: 002-041021

PATIENT
  Age: 3 Year
  Sex: Female

DRUGS (1)
  1. 4% BACTOSHIELD CHG [Suspect]
     Indication: ANTIBACTERIAL PROPHYLAXIS
     Dosage: TOPICAL (USED AS SHAMPOO)
     Route: 061
     Dates: start: 20041004

REACTIONS (3)
  - ACCIDENTAL EXPOSURE [None]
  - EYE IRRITATION [None]
  - EYE REDNESS [None]
